FAERS Safety Report 9173220 (Version 1)
Quarter: 2013Q1

REPORT INFORMATION
  Report Type: Spontaneous
  Country: US (occurrence: None)
  Receive Date: 20130319
  Receipt Date: 20130319
  Transmission Date: 20140127
  Serious: Yes (Death)
  Sender: FDA-Public Use
  Company Number: None

PATIENT
  Age: 72 Year
  Sex: Male
  Weight: 51.9 kg

DRUGS (16)
  1. VFEND [Suspect]
     Indication: ASPERGILLUS INFECTION
     Route: 042
     Dates: start: 20120529, end: 20120530
  2. VFEND [Suspect]
     Route: 048
     Dates: start: 20120530, end: 20120531
  3. ATORVASTATIN [Concomitant]
  4. CARVEDILOL [Concomitant]
  5. CEFTRIAXONE [Concomitant]
  6. DIGOXIN [Concomitant]
  7. DOCUSATE [Concomitant]
  8. LEVOTHROXINE [Concomitant]
  9. METOPROLOL SUCCINATE XL [Concomitant]
  10. VALSARTAN [Concomitant]
  11. GUAIFENESIN WITH CODEINE [Concomitant]
  12. BENADRYL [Concomitant]
  13. ACETAMINOPHEN [Concomitant]
  14. BISACODYL [Concomitant]
  15. IPRATROPIUM [Concomitant]
  16. LEVABUTEROL [Concomitant]

REACTIONS (13)
  - Hallucination [None]
  - Vision blurred [None]
  - Dizziness [None]
  - Insomnia [None]
  - Musculoskeletal stiffness [None]
  - Agitation [None]
  - Aggression [None]
  - Disorientation [None]
  - Confusional state [None]
  - Unresponsive to stimuli [None]
  - Pulse absent [None]
  - Trismus [None]
  - Cardio-respiratory arrest [None]
